FAERS Safety Report 5746279-5 (Version None)
Quarter: 2008Q2

REPORT INFORMATION
  Report Type: 
  Country: None (occurrence: None)
  Receive Date: 20080522
  Receipt Date: 20080515
  Transmission Date: 20081010
  Serious: Yes (Other)
  Sender: FDA-Public Use
  Company Number: PHEH2006US11407

PATIENT
  Sex: Male

DRUGS (1)
  1. ZOMETA [Suspect]
     Indication: MULTIPLE MYELOMA

REACTIONS (10)
  - ANXIETY [None]
  - DECREASED INTEREST [None]
  - DEFORMITY [None]
  - EMOTIONAL DISTRESS [None]
  - GENERAL PHYSICAL HEALTH DETERIORATION [None]
  - INFECTION [None]
  - LIFE EXPECTANCY SHORTENED [None]
  - ORAL INTAKE REDUCED [None]
  - OSTEONECROSIS [None]
  - PAIN [None]
